FAERS Safety Report 7766958-8 (Version None)
Quarter: 2011Q3

REPORT INFORMATION
  Report Type: 
  Country: None (occurrence: None)
  Receive Date: 20110922
  Receipt Date: 20110912
  Transmission Date: 20111222
  Serious: Yes (Hospitalization)
  Sender: FDA-Public Use
  Company Number: US-MYLANLABS-2011S1019016

PATIENT
  Age: 51 Year
  Sex: Male

DRUGS (1)
  1. WARFARIN SODIUM [Suspect]
     Route: 048
     Dates: end: 20110531

REACTIONS (2)
  - ARRHYTHMIA [None]
  - INCREASED TENDENCY TO BRUISE [None]
